FAERS Safety Report 11768515 (Version 2)
Quarter: 2015Q4

REPORT INFORMATION
  Report Type: Spontaneous
  Country: US (occurrence: US)
  Receive Date: 20151123
  Receipt Date: 20151127
  Transmission Date: 20160304
  Serious: Yes (Other)
  Sender: FDA-Public Use
  Company Number: US-BIOGENIDEC-2015BI153526

PATIENT
  Sex: Male

DRUGS (8)
  1. TYLENOL PM [Concomitant]
     Active Substance: ACETAMINOPHEN\DIPHENHYDRAMINE
  2. AMPYRA [Concomitant]
     Active Substance: DALFAMPRIDINE
     Indication: MULTIPLE SCLEROSIS
     Route: 048
     Dates: start: 20111212, end: 20130108
  3. CANASA [Concomitant]
     Active Substance: MESALAMINE
  4. BACLOFEN. [Concomitant]
     Active Substance: BACLOFEN
  5. TECFIDERA [Suspect]
     Active Substance: DIMETHYL FUMARATE
     Indication: PRODUCT USED FOR UNKNOWN INDICATION
     Dates: start: 2013
  6. PREDNISONE. [Concomitant]
     Active Substance: PREDNISONE
  7. COPAXONE [Concomitant]
     Active Substance: GLATIRAMER ACETATE
  8. LYRICA [Concomitant]
     Active Substance: PREGABALIN

REACTIONS (8)
  - Abdominal distension [Unknown]
  - Flushing [Recovered/Resolved]
  - Rectal ulcer [Unknown]
  - Rectal haemorrhage [Unknown]
  - Flatulence [Unknown]
  - Back pain [Recovered/Resolved]
  - Pruritus [Recovered/Resolved]
  - Epistaxis [Unknown]
